FAERS Safety Report 8055901-2 (Version None)
Quarter: 2012Q1

REPORT INFORMATION
  Report Type: 
  Country: None (occurrence: None)
  Receive Date: 20120112
  Receipt Date: 20111231
  Transmission Date: 20120608
  Serious: Yes (Death, Hospitalization)
  Sender: FDA-Public Use
  Company Number: UTC-014109

PATIENT
  Age: 68 Year
  Sex: Female
  Weight: 68.18 kg

DRUGS (8)
  1. DIURETICS (DIURETICS) [Concomitant]
  2. LETAIRIS [Concomitant]
  3. COUMADIN [Concomitant]
  4. OXYGEN (OXYGEN) [Concomitant]
  5. REMODULIN [Suspect]
     Indication: PULMONARY HYPERTENSION
     Dosage: 105.12 US/KG (0.973 UG/KG, 1 IN MIN), INTRAVENOUS
     Route: 042
     Dates: start: 20101123
  6. REMODULIN [Suspect]
     Indication: COR PULMONALE CHRONIC
     Dosage: 105.12 US/KG (0.973 UG/KG, 1 IN MIN), INTRAVENOUS
     Route: 042
     Dates: start: 20101123
  7. ADCIRCA [Concomitant]
  8. DIGOXIN [Concomitant]

REACTIONS (1)
  - RESPIRATORY FAILURE [None]
